FAERS Safety Report 25854964 (Version 1)
Quarter: 2025Q3

REPORT INFORMATION
  Report Type: Spontaneous
  Country: US (occurrence: US)
  Receive Date: 20250927
  Receipt Date: 20250927
  Transmission Date: 20251020
  Serious: No
  Sender: SANOFI AVENTIS
  Company Number: US-SA-2025SA288404

PATIENT
  Age: 2 Year
  Sex: Male
  Weight: 14.55 kg

DRUGS (3)
  1. DUPIXENT [Suspect]
     Active Substance: DUPILUMAB
     Dosage: 300 MG, Q4W
     Route: 058
  2. VITAMINS [Concomitant]
     Active Substance: VITAMINS
  3. CHILDREN CLARITIN ALLERGY [Concomitant]
     Active Substance: LORATADINE

REACTIONS (7)
  - Condition aggravated [Unknown]
  - Skin disorder [Unknown]
  - Scratch [Unknown]
  - Skin haemorrhage [Unknown]
  - Rhinorrhoea [Not Recovered/Not Resolved]
  - Nasopharyngitis [Not Recovered/Not Resolved]
  - Erythema [Unknown]

NARRATIVE: CASE EVENT DATE: 20250923
